FAERS Safety Report 8098877-4 (Version None)
Quarter: 2012Q1

REPORT INFORMATION
  Report Type: 
  Country: None (occurrence: None)
  Receive Date: 20120129
  Receipt Date: 20110926
  Transmission Date: 20120608
  Serious: No
  Sender: FDA-Public Use
  Company Number: US-ABBOTT-11P-163-0857701-00

PATIENT
  Sex: Female
  Weight: 120.31 kg

DRUGS (3)
  1. HUMIRA [Suspect]
     Indication: PSORIATIC ARTHROPATHY
     Route: 058
     Dates: start: 20110902
  2. CELEXA [Concomitant]
     Indication: DEPRESSION
  3. HUMIRA [Suspect]
     Indication: PSORIASIS
     Route: 058
     Dates: start: 20100301, end: 20110701

REACTIONS (3)
  - RECTAL HAEMORRHAGE [None]
  - ARTHRALGIA [None]
  - PSORIASIS [None]
